FAERS Safety Report 23032260 (Version 1)
Quarter: 2023Q4

REPORT INFORMATION
  Report Type: Spontaneous
  Country: US (occurrence: None)
  Receive Date: 20231004
  Receipt Date: 20231004
  Transmission Date: 20240110
  Serious: Yes (Hospitalization)
  Sender: FDA-Public Use
  Company Number: None

PATIENT
  Sex: Male

DRUGS (8)
  1. DROXIDOPA [Suspect]
     Active Substance: DROXIDOPA
     Route: 048
  2. ASPIRIN [Concomitant]
  3. CLONAZEPAM [Concomitant]
  4. COSENTYX [Concomitant]
  5. COSENTYX [Concomitant]
     Active Substance: SECUKINUMAB
  6. FAMOTIDINE [Concomitant]
  7. RANOLAZINE [Concomitant]
     Active Substance: RANOLAZINE
  8. ROSUVASTATIN [Concomitant]

REACTIONS (1)
  - Hospitalisation [None]
